FAERS Safety Report 23445813 (Version 2)
Quarter: 2024Q3

REPORT INFORMATION
  Report Type: Spontaneous
  Country: CA (occurrence: CA)
  Receive Date: 20240126
  Receipt Date: 20240723
  Transmission Date: 20241017
  Serious: Yes (Hospitalization, Other)
  Sender: INTERCEPT PHARMACEUTICALS
  Company Number: CA-ADVANZ PHARMA-202211008413

PATIENT
  Age: 59 Year
  Sex: Female

DRUGS (1)
  1. OCALIVA [Suspect]
     Active Substance: OBETICHOLIC ACID
     Indication: Primary biliary cholangitis
     Dosage: 5 MG, QD,OCALIVA
     Route: 048
     Dates: start: 20170914, end: 202401

REACTIONS (9)
  - Encephalopathy [Unknown]
  - Surgery [Unknown]
  - Splenic artery aneurysm [Unknown]
  - Contusion [Unknown]
  - Nausea [Unknown]
  - Eating disorder [Unknown]
  - Confusional state [Unknown]
  - Drug ineffective [Unknown]
  - Therapy cessation [Unknown]

NARRATIVE: CASE EVENT DATE: 20231001
